FAERS Safety Report 9507965 (Version 1)
Quarter: 2013Q1

REPORT INFORMATION
  Report Type: Spontaneous
  Country: US (occurrence: None)
  Receive Date: 20130305
  Receipt Date: 20130305
  Transmission Date: 20140127
  Serious: Yes (Hospitalization)
  Sender: FDA-Public Use
  Company Number: 163-21880-12052756

PATIENT
  Age: 83 Year
  Sex: Female
  Weight: 58.06 kg

DRUGS (7)
  1. REVLIMID [Suspect]
     Indication: SKIN DISCOLOURATION
     Dosage: 5 MG, 1 IN 1 D, PO
     Route: 048
     Dates: start: 201007, end: 2010
  2. ASPIRIN (ACETYLSALICYLIC ACID) [Concomitant]
  3. EVISTA (RALOXIFENE HYDROCHLORIDE) [Concomitant]
  4. FISH OIL [Concomitant]
  5. LIPITOR (ATORVASTATIN) [Concomitant]
  6. METOPROLOL [Concomitant]
  7. NIFEDICAL XL (NIFEDIPINE) [Concomitant]

REACTIONS (3)
  - Headache [None]
  - Deep vein thrombosis [None]
  - Pulmonary embolism [None]
